FAERS Safety Report 8943076 (Version 1)
Quarter: 2012Q4

REPORT INFORMATION
  Report Type: 
  Country: KR (occurrence: KR)
  Receive Date: 20121204
  Receipt Date: 20121204
  Transmission Date: 20130627
  Serious: Yes (Hospitalization, Other)
  Sender: FDA-Public Use
  Company Number: KR-PAR PHARMACEUTICAL, INC-2012SCPR004739

PATIENT

DRUGS (2)
  1. METRONIDAZOLE [Suspect]
     Indication: BRAIN ABSCESS
     Dosage: 15 g, over a period of 10 days
     Route: 042
  2. METRONIDAZOLE [Suspect]
     Dosage: 1.5 g, per day
     Route: 065

REACTIONS (4)
  - Toxic encephalopathy [Recovered/Resolved]
  - Nervousness [Unknown]
  - Neutropenia [Recovered/Resolved]
  - Depressed mood [Unknown]
